FAERS Safety Report 15757333 (Version 3)
Quarter: 2019Q2

REPORT INFORMATION
  Report Type: Report from Study
  Country: US (occurrence: US)
  Receive Date: 20181224
  Receipt Date: 20190422
  Transmission Date: 20190711
  Serious: Yes (Hospitalization)
  Sender: FDA-Public Use
  Company Number: PHEH2018US053633

PATIENT
  Age: 58 Year
  Sex: Female

DRUGS (1)
  1. ENTRESTO [Suspect]
     Active Substance: SACUBITRIL\VALSARTAN
     Indication: CARDIAC FAILURE
     Dosage: UNK
     Route: 048

REACTIONS (6)
  - Anxiety [Unknown]
  - Fatigue [Unknown]
  - Dyspnoea [Unknown]
  - Weight fluctuation [Unknown]
  - Nasopharyngitis [Unknown]
  - Stress [Unknown]

NARRATIVE: CASE EVENT DATE: 20190120
